FAERS Safety Report 24958046 (Version 1)
Quarter: 2025Q1

REPORT INFORMATION
  Report Type: Spontaneous
  Country: CA (occurrence: CA)
  Receive Date: 20250212
  Receipt Date: 20250212
  Transmission Date: 20250409
  Serious: Yes (Hospitalization, Other)
  Sender: CSL BEHRING
  Company Number: CA-BEH-2025194824

PATIENT
  Age: 77 Year
  Sex: Female

DRUGS (7)
  1. HUMAN IMMUNOGLOBULIN G [Suspect]
     Active Substance: HUMAN IMMUNOGLOBULIN G
     Indication: Secondary immunodeficiency
     Dosage: 5 G, QW
     Route: 058
  2. CITALOPRAM [Concomitant]
     Active Substance: CITALOPRAM
     Route: 065
  3. FOLIC ACID [Concomitant]
     Active Substance: FOLIC ACID
     Dosage: 5 MG, TIW
     Route: 065
  4. METOPROLOL [Concomitant]
     Active Substance: METOPROLOL
     Dosage: 50 MG, BID
     Route: 065
  5. POTASSIUM CHLORIDE [Concomitant]
     Active Substance: POTASSIUM CHLORIDE
     Dosage: 8 MEQ, BID
  6. PREDNISONE [Concomitant]
     Active Substance: PREDNISONE
     Route: 065
  7. RABEPRAZOLE [Concomitant]
     Active Substance: RABEPRAZOLE
     Dosage: 10 MG, BID
     Route: 065

REACTIONS (4)
  - Neoplasm malignant [Unknown]
  - Dementia [Unknown]
  - Stress [Unknown]
  - Off label use [Unknown]
